FAERS Safety Report 4278628-1 (Version None)
Quarter: 2004Q1

REPORT INFORMATION
  Report Type: 
  Country: None (occurrence: None)
  Receive Date: 20040122
  Receipt Date: 20040122
  Transmission Date: 20041129
  Serious: Yes (Other)
  Sender: FDA-Public Use
  Company Number: None

PATIENT
  Age: 19 Year
  Sex: Female
  Weight: 60 kg

DRUGS (1)
  1. LACTATED RINGERS SOLUTION (BAXTER) [Suspect]
     Indication: FLUID REPLACEMENT
     Dosage: IV
     Route: 042
     Dates: start: 20031016

REACTIONS (1)
  - URTICARIA [None]
